FAERS Safety Report 6698144 (Version 1)
Quarter: 2020Q3

REPORT INFORMATION
  Report Type: Spontaneous
  Country: US (occurrence: None)
  Receive Date: 20080701
  Receipt Date: 20080701
  Transmission Date: 20201104
  Serious: No
  Sender: FDA-Public Use
  Company Number: None

PATIENT

DRUGS (2)
  1. HOMATROPINE HYDROBROMIDE. [Suspect]
     Active Substance: HOMATROPINE HYDROBROMIDE
     Dosage: SOLUTION/DROPS
  2. ISOPTO ATROPINE [Suspect]
     Active Substance: ATROPINE SULFATE
     Dosage: SOLUTION/DROPS

REACTIONS (3)
  - Mydriasis [None]
  - Medication error [None]
  - Wrong product administered [None]
